FAERS Safety Report 13100341 (Version 1)
Quarter: 2017Q1

REPORT INFORMATION
  Report Type: Spontaneous
  Country: FR (occurrence: FR)
  Receive Date: 20170110
  Receipt Date: 20170110
  Transmission Date: 20170428
  Serious: Yes (Disabling)
  Sender: FDA-Public Use
  Company Number: FR-ROCHE-1875745

PATIENT
  Age: 71 Year
  Sex: Male

DRUGS (7)
  1. TIAPRIDE [Suspect]
     Active Substance: TIAPRIDE
     Indication: AGGRESSION
     Route: 048
     Dates: start: 20161129, end: 201612
  2. DOLIPRANE [Concomitant]
     Active Substance: ACETAMINOPHEN
  3. GABAPENTINE [Suspect]
     Active Substance: GABAPENTIN
     Indication: PRODUCT USED FOR UNKNOWN INDICATION
     Route: 048
     Dates: start: 201611, end: 201612
  4. VALIUM [Suspect]
     Active Substance: DIAZEPAM
     Indication: AGGRESSION
     Route: 048
     Dates: start: 201611, end: 201612
  5. BACLOFENE [Suspect]
     Active Substance: BACLOFEN
     Indication: PRODUCT USED FOR UNKNOWN INDICATION
     Route: 048
     Dates: end: 201612
  6. ESOMEPRAZOLE [Concomitant]
     Active Substance: ESOMEPRAZOLE
  7. GABAPENTINE [Suspect]
     Active Substance: GABAPENTIN
     Route: 048
     Dates: start: 20161206

REACTIONS (1)
  - Sedation [Recovered/Resolved]

NARRATIVE: CASE EVENT DATE: 20161130
